FAERS Safety Report 6832270-4 (Version None)
Quarter: 2010Q3

REPORT INFORMATION
  Report Type: 
  Country: None (occurrence: None)
  Receive Date: 20100712
  Receipt Date: 20100702
  Transmission Date: 20110219
  Serious: Yes (Hospitalization, Other)
  Sender: FDA-Public Use
  Company Number: CHPA2010US10860

PATIENT
  Age: 67 Year
  Sex: Female

DRUGS (2)
  1. EXCEDRIN (MIGRAINE) [Suspect]
     Indication: MIGRAINE
     Dosage: 8-10 DF, QW
     Route: 048
     Dates: end: 20100501
  2. EFFEXOR [Concomitant]
     Dosage: UNK, UNK

REACTIONS (4)
  - ARTERIAL OCCLUSIVE DISEASE [None]
  - HAEMOGLOBIN DECREASED [None]
  - HAEMORRHAGE [None]
  - TRANSFUSION REACTION [None]
